FAERS Safety Report 11024837 (Version 1)
Quarter: 2015Q2

REPORT INFORMATION
  Report Type: Spontaneous
  Country: GB (occurrence: GB)
  Receive Date: 20150414
  Receipt Date: 20150414
  Transmission Date: 20150821
  Serious: Yes (Hospitalization, Other)
  Sender: FDA-Public Use
  Company Number: GB-TEVA-553442ACC

PATIENT
  Age: 68 Year
  Sex: Male
  Weight: 74 kg

DRUGS (9)
  1. EPIRUBICIN [Suspect]
     Active Substance: EPIRUBICIN
  2. AVASTIN [Suspect]
     Active Substance: BEVACIZUMAB
     Indication: GASTRIC CANCER
     Dosage: DATE OF MOST RECENT DOSE: 28/JAN/2013.
     Route: 042
     Dates: start: 20121127
  3. CISPLATIN. [Suspect]
     Active Substance: CISPLATIN
     Indication: GASTRIC CANCER
     Dosage: DATE OF MOST RECENT DOSE: 28/JAN/2013.
     Route: 042
     Dates: start: 20121127
  4. PARACETAMOL [Concomitant]
     Active Substance: ACETAMINOPHEN
     Route: 042
     Dates: start: 20130326, end: 20130426
  5. XELODA [Suspect]
     Active Substance: CAPECITABINE
     Indication: GASTRIC CANCER
     Route: 048
     Dates: start: 20121127
  6. NITROFURANTOIN. [Concomitant]
     Active Substance: NITROFURANTOIN
     Route: 048
     Dates: start: 20130716
  7. EPIRUBICIN [Suspect]
     Active Substance: EPIRUBICIN
     Indication: GASTRIC CANCER
     Dosage: DATE OF MOST RECENT DOSE: 12/JUL/2013
     Route: 042
     Dates: start: 20121127
  8. SIMVASTATIN. [Concomitant]
     Active Substance: SIMVASTATIN
     Route: 048
     Dates: start: 20070112
  9. TAZOCIN [Concomitant]
     Active Substance: PIPERACILLIN SODIUM\TAZOBACTAM SODIUM
     Route: 042

REACTIONS (2)
  - Pulmonary embolism [Not Recovered/Not Resolved]
  - Anastomotic leak [Recovered/Resolved with Sequelae]

NARRATIVE: CASE EVENT DATE: 20130404
